FAERS Safety Report 6272590-8 (Version None)
Quarter: 2009Q3

REPORT INFORMATION
  Report Type: 
  Country: None (occurrence: None)
  Receive Date: 20090713
  Receipt Date: 20090216
  Transmission Date: 20100115
  Serious: Yes (Other)
  Sender: FDA-Public Use
  Company Number: 615294

PATIENT
  Sex: Female

DRUGS (1)
  1. BONIVA [Suspect]
     Indication: DRUG USE FOR UNKNOWN INDICATION
     Dosage: 1 DOSE FORM  1 PER MONTH
     Dates: start: 20070101

REACTIONS (3)
  - ARTHRALGIA [None]
  - BACK PAIN [None]
  - INSOMNIA [None]
